FAERS Safety Report 4816163-X (Version None)
Quarter: 2005Q4

REPORT INFORMATION
  Report Type: 
  Country: None (occurrence: None)
  Receive Date: 20051026
  Receipt Date: 20051011
  Transmission Date: 20060501
  Serious: Yes (Hospitalization)
  Sender: FDA-Public Use
  Company Number: USA050495657

PATIENT
  Age: 58 Year
  Sex: Female

DRUGS (4)
  1. GEMZAR [Suspect]
     Indication: BREAST CANCER METASTATIC
     Dosage: 1000 MG/M2 OTHER
     Dates: start: 20050114, end: 20050325
  2. GEMZAR [Suspect]
     Indication: METASTASES TO BONE
     Dosage: 1000 MG/M2 OTHER
     Dates: start: 20050114, end: 20050325
  3. GEMZAR [Suspect]
     Indication: METASTASES TO PLEURA
     Dosage: 1000 MG/M2 OTHER
     Dates: start: 20050114, end: 20050325
  4. OXYGEN [Concomitant]

REACTIONS (4)
  - BLOOD CREATININE DECREASED [None]
  - DRUG TOXICITY [None]
  - HAEMATOCRIT DECREASED [None]
  - PNEUMONITIS [None]
